FAERS Safety Report 12358907 (Version 2)
Quarter: 2016Q2

REPORT INFORMATION
  Report Type: Spontaneous
  Country: ZA (occurrence: ZA)
  Receive Date: 20160512
  Receipt Date: 20160513
  Transmission Date: 20160815
  Serious: Yes (Other)
  Sender: FDA-Public Use
  Company Number: ZA-CIPLA LTD.-2016ZA04913

PATIENT

DRUGS (3)
  1. MYBULEN [Concomitant]
     Dosage: UNK, 1 TO 2 TABS THREE TIMES DAILY, PRN
     Route: 048
     Dates: start: 20160419
  2. TAVALOXX 750 [Suspect]
     Active Substance: LEVOFLOXACIN
     Dosage: 750 MG, QD, ONE TABLET
     Route: 048
     Dates: start: 20160419, end: 20160422
  3. FLORAWIN [Concomitant]
     Dosage: UNK, ONE CAPSULE BID, FOR 5 DAYS
     Route: 048
     Dates: start: 20160419

REACTIONS (4)
  - Rash [Recovering/Resolving]
  - Pruritus [Recovering/Resolving]
  - Sensory loss [Unknown]
  - Skin exfoliation [Recovering/Resolving]

NARRATIVE: CASE EVENT DATE: 20160420
